FAERS Safety Report 9395970 (Version 1)
Quarter: 2013Q3

REPORT INFORMATION
  Report Type: Spontaneous
  Country: US (occurrence: US)
  Receive Date: 20130711
  Receipt Date: 20130711
  Transmission Date: 20140515
  Serious: No
  Sender: FDA-Public Use
  Company Number: US-PFIZER INC-2013202791

PATIENT
  Age: 46 Year
  Sex: Female

DRUGS (1)
  1. XELJANZ [Suspect]
     Dosage: UNK
     Dates: start: 20130512

REACTIONS (7)
  - Drug ineffective [Unknown]
  - Rash [Unknown]
  - Night sweats [Unknown]
  - Diarrhoea [Unknown]
  - Arthralgia [Unknown]
  - Joint swelling [Unknown]
  - Immune system disorder [Unknown]
